FAERS Safety Report 11792162 (Version 1)
Quarter: 2015Q4

REPORT INFORMATION
  Report Type: Spontaneous
  Country: US (occurrence: US)
  Receive Date: 20151201
  Receipt Date: 20151201
  Transmission Date: 20160305
  Serious: Yes (Other)
  Sender: FDA-Public Use
  Company Number: US-STANDARD HOMEOPATHIC COMPANY-1044881

PATIENT
  Age: 6 Month
  Sex: Male

DRUGS (2)
  1. BABY TEETHING [Suspect]
     Active Substance: ATROPA BELLADONNA\CALCIUM PHOSPHATE\CHAMOMILE\COFFEA ARABICA FRUIT
     Indication: PAIN
     Route: 048
  2. INFANTS GAS DROPS [Concomitant]
     Active Substance: DIMETHICONE
     Route: 048

REACTIONS (2)
  - Seizure [Unknown]
  - Ear disorder [None]

NARRATIVE: CASE EVENT DATE: 201501
